FAERS Safety Report 8460208-5 (Version None)
Quarter: 2012Q2

REPORT INFORMATION
  Report Type: 
  Country: None (occurrence: None)
  Receive Date: 20120622
  Receipt Date: 20120611
  Transmission Date: 20120825
  Serious: Yes (Life-Threatening, Hospitalization)
  Sender: FDA-Public Use
  Company Number: GB-CELGENEUS-167-50794-12061551

PATIENT
  Sex: Male
  Weight: 162 kg

DRUGS (2)
  1. GRANISETRON [Concomitant]
     Indication: ANTIEMETIC SUPPORTIVE CARE
     Dosage: 2 MILLIGRAM
     Route: 065
     Dates: start: 20120319, end: 20120522
  2. VIDAZA [Suspect]
     Dosage: 95 MILLIGRAM
     Route: 058
     Dates: start: 20120319, end: 20120522

REACTIONS (1)
  - RENAL FAILURE ACUTE [None]
